FAERS Safety Report 7050167-4 (Version None)
Quarter: 2010Q4

REPORT INFORMATION
  Report Type: 
  Country: None (occurrence: None)
  Receive Date: 20101018
  Receipt Date: 20101006
  Transmission Date: 20110411
  Serious: Yes (Other)
  Sender: FDA-Public Use
  Company Number: IN-AMGEN INC.-QUU445193

PATIENT

DRUGS (2)
  1. ENBREL [Suspect]
     Indication: RHEUMATOID ARTHRITIS
     Dosage: 25 MG, 2 TIMES/WK
     Route: 058
  2. PREDNISOLONE [Concomitant]
     Indication: RHEUMATOID ARTHRITIS
     Dosage: .5 MG/KG, QD

REACTIONS (4)
  - BONE MARROW FAILURE [None]
  - GINGIVAL ABSCESS [None]
  - GRANULOCYTES MATURATION ARREST [None]
  - NEUTROPENIA [None]
